FAERS Safety Report 5151343-8 (Version None)
Quarter: 2006Q4

REPORT INFORMATION
  Report Type: 
  Country: None (occurrence: None)
  Receive Date: 20061115
  Receipt Date: 20061106
  Transmission Date: 20070319
  Serious: Yes (Hospitalization)
  Sender: FDA-Public Use
  Company Number: FR-GLAXOSMITHKLINE-B0446286A

PATIENT
  Age: 64 Year
  Sex: Male

DRUGS (9)
  1. AUGMENTIN '125' [Suspect]
     Indication: CHEMOTHERAPY
     Route: 065
     Dates: start: 20060222, end: 20060329
  2. SOLU-MEDROL [Suspect]
     Indication: CHEMOTHERAPY
     Route: 065
     Dates: start: 20060227, end: 20060329
  3. ROCEPHIN [Suspect]
     Indication: CHEMOTHERAPY
     Route: 065
     Dates: start: 20060217, end: 20060329
  4. ENDOXAN [Concomitant]
     Indication: CHEMOTHERAPY
     Route: 048
     Dates: start: 20060227, end: 20060227
  5. MABTHERA [Concomitant]
     Indication: CHEMOTHERAPY
     Route: 065
     Dates: start: 20060227
  6. FLUDARABINE PHOSPHATE [Concomitant]
     Indication: CHEMOTHERAPY
     Route: 065
  7. ZOFRAN [Concomitant]
     Indication: CHEMOTHERAPY
     Route: 065
     Dates: start: 20060227
  8. POLARAMINE [Concomitant]
     Indication: CHEMOTHERAPY
     Route: 065
     Dates: start: 20060327
  9. ACETAMINOPHEN [Concomitant]
     Indication: CHEMOTHERAPY
     Route: 042
     Dates: start: 20060327

REACTIONS (5)
  - CROSS SENSITIVITY REACTION [None]
  - EOSINOPHILIA [None]
  - HYPERSENSITIVITY [None]
  - OEDEMA [None]
  - RASH ERYTHEMATOUS [None]
